FAERS Safety Report 7672411-2 (Version None)
Quarter: 2011Q3

REPORT INFORMATION
  Report Type: 
  Country: None (occurrence: None)
  Receive Date: 20110809
  Receipt Date: 20110729
  Transmission Date: 20111222
  Serious: Yes (Hospitalization, Disabling, Other)
  Sender: FDA-Public Use
  Company Number: US-MERCK-1103USA03817

PATIENT
  Age: 61 Year
  Sex: Female
  Weight: 62 kg

DRUGS (4)
  1. FOSAMAX [Suspect]
     Route: 048
     Dates: start: 20010312, end: 20011016
  2. DIOVAN [Concomitant]
     Route: 065
  3. FOSAMAX [Suspect]
     Indication: BONE LOSS
     Route: 048
     Dates: start: 19980101, end: 20050101
  4. VITAMINS (UNSPECIFIED) [Concomitant]
     Route: 065

REACTIONS (11)
  - FEMUR FRACTURE [None]
  - FALL [None]
  - ARTHROPATHY [None]
  - NEPHROLITHIASIS [None]
  - OSTEOPENIA [None]
  - OSTEOPOROSIS [None]
  - PATELLA FRACTURE [None]
  - DEVICE FAILURE [None]
  - TOOTH DISORDER [None]
  - NAUSEA [None]
  - HYPOAESTHESIA [None]
